FAERS Safety Report 14859911 (Version 1)
Quarter: 2018Q2

REPORT INFORMATION
  Report Type: Spontaneous
  Country: FR (occurrence: FR)
  Receive Date: 20180508
  Receipt Date: 20180508
  Transmission Date: 20180711
  Serious: Yes (Other)
  Sender: FDA-Public Use
  Company Number: FR-MERCK KGAA-2047395

PATIENT
  Age: 75 Year
  Sex: Female

DRUGS (1)
  1. NOVOTHYROX [Suspect]
     Active Substance: LEVOTHYROXINE SODIUM
     Indication: PRODUCT USED FOR UNKNOWN INDICATION

REACTIONS (26)
  - Fatigue [None]
  - Agitation [None]
  - Eye disorder [None]
  - Loss of personal independence in daily activities [None]
  - Fall [None]
  - Weight increased [None]
  - Negative thoughts [None]
  - Balance disorder [None]
  - Insomnia [None]
  - Muscle rupture [None]
  - Malaise [None]
  - Impaired driving ability [None]
  - Alopecia [None]
  - Hyperthyroidism [None]
  - Sleep disorder [None]
  - Dizziness [None]
  - Urinary incontinence [None]
  - Suicidal ideation [None]
  - Aggression [None]
  - Mood swings [None]
  - Muscle spasms [None]
  - Headache [None]
  - Diarrhoea [None]
  - Gastrointestinal disorder [None]
  - Hyperhidrosis [None]
  - Myalgia [None]

NARRATIVE: CASE EVENT DATE: 201710
